FAERS Safety Report 21154724 (Version 3)
Quarter: 2022Q3

REPORT INFORMATION
  Report Type: Spontaneous
  Country: US (occurrence: US)
  Receive Date: 20220801
  Receipt Date: 20220822
  Transmission Date: 20221027
  Serious: Yes (Other)
  Sender: FDA-Public Use
  Company Number: US-BAUSCH-BL-2022-018638

PATIENT
  Age: 66 Year
  Sex: Female

DRUGS (2)
  1. WELLBUTRIN XL [Suspect]
     Active Substance: BUPROPION HYDROCHLORIDE
     Indication: Depression
     Route: 048
     Dates: start: 202107
  2. WELLBUTRIN XL [Suspect]
     Active Substance: BUPROPION HYDROCHLORIDE
     Indication: Seasonal affective disorder

REACTIONS (12)
  - Cataract [Unknown]
  - Suicidal ideation [Recovering/Resolving]
  - General physical health deterioration [Unknown]
  - Halo vision [Unknown]
  - Inflammation [Unknown]
  - Visual impairment [Unknown]
  - Vision blurred [Unknown]
  - Insomnia [Recovered/Resolved]
  - Aggression [Recovered/Resolved]
  - Irritability [Unknown]
  - Confusional state [Recovered/Resolved]
  - Product label issue [Unknown]

NARRATIVE: CASE EVENT DATE: 20210101
